FAERS Safety Report 10100335 (Version 1)
Quarter: 2014Q2

REPORT INFORMATION
  Report Type: Spontaneous
  Country: US (occurrence: US)
  Receive Date: 20140423
  Receipt Date: 20140423
  Transmission Date: 20141212
  Serious: Yes (Other)
  Sender: FDA-Public Use
  Company Number: US-BAYER-2014-058664

PATIENT
  Age: 85 Year
  Sex: Male
  Weight: 74.83 kg

DRUGS (6)
  1. ALEVE LIQUID GELS [Suspect]
     Indication: BACK PAIN
     Dosage: 1 DF, PRN
     Route: 048
     Dates: start: 201404, end: 20140418
  2. BAYER ASPIRIN REGIMEN ADULT LOW STRENGTH [Suspect]
  3. ATACAND [CANDESARTAN CILEXETIL] [Concomitant]
  4. CRESTOR [Concomitant]
  5. DOXAZOSIN [Concomitant]
  6. COUMADIN [Concomitant]

REACTIONS (3)
  - Blood blister [Recovered/Resolved]
  - Tongue blistering [Recovered/Resolved]
  - Blister rupture [Recovered/Resolved]
